FAERS Safety Report 8206432-8 (Version None)
Quarter: 2012Q1

REPORT INFORMATION
  Report Type: 
  Country: None (occurrence: None)
  Receive Date: 20120313
  Receipt Date: 20120309
  Transmission Date: 20120608
  Serious: Yes (Death)
  Sender: FDA-Public Use
  Company Number: PHHY2012JP020797

PATIENT
  Sex: Female

DRUGS (5)
  1. MEMANTINE HYDROCHLORIDE [Concomitant]
     Route: 048
  2. VIVIANT [Concomitant]
     Route: 048
  3. ALFAROL [Concomitant]
     Route: 048
  4. EXELON [Suspect]
     Dosage: 4.5 MG, DAILY
     Route: 062
     Dates: start: 20111101
  5. OMEPRAZOLE [Concomitant]
     Route: 048

REACTIONS (1)
  - DEATH [None]
